FAERS Safety Report 6908975-3 (Version None)
Quarter: 2010Q3

REPORT INFORMATION
  Report Type: 
  Country: None (occurrence: None)
  Receive Date: 20100805
  Receipt Date: 20100723
  Transmission Date: 20110219
  Serious: Yes (Other)
  Sender: FDA-Public Use
  Company Number: BR-BAYER-201016569LA

PATIENT
  Age: 36 Year
  Sex: Female
  Weight: 58 kg

DRUGS (3)
  1. MIRENA [Suspect]
     Indication: CONTRACEPTION
     Dosage: FREQUENCY: CONTINUOUS
     Route: 015
  2. MIRENA [Suspect]
     Dosage: FREQUENCY: CONTINUOUS
     Route: 015
     Dates: start: 20091223
  3. IMPLANON [Concomitant]
     Indication: PRODUCT USED FOR UNKNOWN INDICATION

REACTIONS (3)
  - AMENORRHOEA [None]
  - DEAFNESS UNILATERAL [None]
  - HYPOMENORRHOEA [None]
